FAERS Safety Report 4875605-4 (Version None)
Quarter: 2006Q1

REPORT INFORMATION
  Report Type: 
  Country: None (occurrence: None)
  Receive Date: 20060109
  Receipt Date: 20051213
  Transmission Date: 20060701
  Serious: Yes (Death)
  Sender: FDA-Public Use
  Company Number: FR-ROCHE-428335

PATIENT
  Sex: Female

DRUGS (2)
  1. LOXEN LP [Suspect]
     Indication: PRE-ECLAMPSIA
     Route: 048
     Dates: start: 20051103, end: 20051125
  2. SPASFON [Concomitant]

REACTIONS (3)
  - DRUG EXPOSURE DURING PREGNANCY [None]
  - INTRA-UTERINE DEATH [None]
  - RETROPLACENTAL HAEMATOMA [None]
